FAERS Safety Report 25991373 (Version 2)
Quarter: 2025Q4

REPORT INFORMATION
  Report Type: Spontaneous
  Country: US (occurrence: US)
  Receive Date: 20251103
  Receipt Date: 20251110
  Transmission Date: 20260117
  Serious: Yes (Other)
  Sender: SANDOZ
  Company Number: US-002147023-NVSC2025US165652

PATIENT
  Sex: Male

DRUGS (6)
  1. LEQVIO [Suspect]
     Active Substance: INCLISIRAN SODIUM
     Indication: Type IIa hyperlipidaemia
     Dosage: UNK, OTHER (EVERY 3 MONTHS THEN 6 MONTHS)
     Route: 030
     Dates: start: 20251008
  2. ROSUVASTATIN [Suspect]
     Active Substance: ROSUVASTATIN
     Indication: Product used for unknown indication
     Dosage: 10 MG
     Route: 065
  3. 3 omegas [Concomitant]
     Indication: Product used for unknown indication
     Dosage: UNK
     Route: 065
  4. ASPIRIN [Concomitant]
     Active Substance: ASPIRIN
     Indication: Product used for unknown indication
     Dosage: 81 MG, QD
     Route: 065
  5. LANSOPRAZOLE [Concomitant]
     Active Substance: LANSOPRAZOLE
     Indication: Product used for unknown indication
     Dosage: UNK
     Route: 065
  6. METOPROLOL [Concomitant]
     Active Substance: METOPROLOL
     Indication: Product used for unknown indication
     Dosage: 50 MG
     Route: 065

REACTIONS (15)
  - Rash [Recovering/Resolving]
  - Myalgia [Not Recovered/Not Resolved]
  - Arthralgia [Recovered/Resolved]
  - Injection site rash [Not Recovered/Not Resolved]
  - Injection site discomfort [Unknown]
  - Muscle fatigue [Unknown]
  - Nasopharyngitis [Unknown]
  - Back pain [Unknown]
  - Nasal congestion [Unknown]
  - Rash papular [Unknown]
  - Rash erythematous [Unknown]
  - Rash pruritic [Unknown]
  - Influenza [Unknown]
  - Dry skin [Unknown]
  - Bacterial infection [Unknown]
